FAERS Safety Report 5614517-5 (Version None)
Quarter: 2008Q1

REPORT INFORMATION
  Report Type: 
  Country: None (occurrence: None)
  Receive Date: 20080205
  Receipt Date: 20080110
  Transmission Date: 20080703
  Serious: No
  Sender: FDA-Public Use
  Company Number: US-BOEHRINGER INGELHEIM GMBH, GERMANY-2008-BP-00566BP

PATIENT
  Age: 61 Year
  Sex: Female

DRUGS (10)
  1. MIRAPEX [Suspect]
     Indication: RESTLESS LEGS SYNDROME
     Route: 048
     Dates: start: 20060101
  2. MIRAPEX [Suspect]
     Route: 048
     Dates: start: 20060101
  3. MIRAPEX [Suspect]
     Route: 048
     Dates: start: 20060101
  4. MIRAPEX [Suspect]
     Route: 048
     Dates: start: 20060101
  5. MIRAPEX [Suspect]
     Route: 048
     Dates: start: 20060101
  6. MIRAPEX [Suspect]
     Route: 048
     Dates: start: 20060101
  7. LEXAPRO [Concomitant]
  8. KLONOPIN [Concomitant]
  9. RITALIN [Concomitant]
  10. CARAFATE [Concomitant]

REACTIONS (7)
  - DRUG INEFFECTIVE [None]
  - DYSPEPSIA [None]
  - HALLUCINATION [None]
  - MIGRAINE [None]
  - NAUSEA [None]
  - NIGHTMARE [None]
  - SOMNOLENCE [None]
